FAERS Safety Report 5801853-2 (Version None)
Quarter: 2008Q3

REPORT INFORMATION
  Report Type: 
  Country: None (occurrence: None)
  Receive Date: 20080707
  Receipt Date: 20080624
  Transmission Date: 20090109
  Serious: Yes (Other)
  Sender: FDA-Public Use
  Company Number: US-WATSON-2008-03806

PATIENT
  Sex: Female

DRUGS (2)
  1. TRELSTAR DEPOT [Suspect]
     Indication: PROSTATE CANCER
     Dosage: 3.75 MG, UNK
     Route: 030
     Dates: start: 20040528, end: 20080527
  2. TAMOXIFEN CITRATE [Suspect]
     Indication: BREAST CANCER
     Dosage: 20 MG, UNK
     Route: 048
     Dates: start: 20040528, end: 20080522

REACTIONS (1)
  - ENDOMETRIAL CANCER [None]
